FAERS Safety Report 15983559 (Version 6)
Quarter: 2021Q3

REPORT INFORMATION
  Report Type: Other
  Country: CA (occurrence: CA)
  Receive Date: 20190220
  Receipt Date: 20210902
  Transmission Date: 20211014
  Serious: Yes (Hospitalization, Other)
  Sender: FDA-Public Use
  Company Number: CA-ROCHE-2260682

PATIENT
  Age: 56 Year
  Sex: Female

DRUGS (5)
  1. BACLOFEN. [Suspect]
     Active Substance: BACLOFEN
     Indication: MUSCLE SPASMS
     Dosage: 10 MG IN THE MORNING, 5 MG AT LUNCH, 5 MG AT SUPPE
     Route: 065
     Dates: start: 20190114
  2. BACLOFEN. [Suspect]
     Active Substance: BACLOFEN
     Route: 065
  3. GINGER. [Concomitant]
     Active Substance: GINGER
  4. CBD;THC [Concomitant]
  5. OCREVUS [Suspect]
     Active Substance: OCRELIZUMAB
     Indication: PRIMARY PROGRESSIVE MULTIPLE SCLEROSIS
     Dosage: 300 MG AT DAY 0 AND 14, THEN 600 MG EVERY 6 MONTH
     Route: 042
     Dates: start: 20180816

REACTIONS (16)
  - Gastric disorder [Recovered/Resolved]
  - Nasal polyps [Unknown]
  - Asthenia [Unknown]
  - Intestinal obstruction [Recovered/Resolved]
  - Asthenia [Recovering/Resolving]
  - Influenza [Recovering/Resolving]
  - Depressed mood [Unknown]
  - Muscle spasticity [Recovered/Resolved]
  - Multiple sclerosis [Not Recovered/Not Resolved]
  - Muscle spasms [Not Recovered/Not Resolved]
  - Pyrexia [Unknown]
  - Gastrointestinal disorder [Recovering/Resolving]
  - Vomiting [Recovered/Resolved]
  - B-lymphocyte count decreased [Not Recovered/Not Resolved]
  - Hypersomnia [Unknown]
  - Fatigue [Recovering/Resolving]

NARRATIVE: CASE EVENT DATE: 201901
